FAERS Safety Report 12824906 (Version 1)
Quarter: 2016Q4

REPORT INFORMATION
  Report Type: Spontaneous
  Country: AU (occurrence: AU)
  Receive Date: 20161007
  Receipt Date: 20161007
  Transmission Date: 20170207
  Serious: Yes (Other)
  Sender: FDA-Public Use
  Company Number: AU-BAYER-2016-189965

PATIENT
  Age: 30 Year
  Sex: Female

DRUGS (2)
  1. YAZ [Suspect]
     Active Substance: DROSPIRENONE\ETHINYL ESTRADIOL
     Indication: POLYCYSTIC OVARIES
     Dosage: UNK
     Route: 048
  2. YASMIN [Suspect]
     Active Substance: DROSPIRENONE\ETHINYL ESTRADIOL
     Indication: POLYCYSTIC OVARIES
     Dosage: UNK
     Route: 048

REACTIONS (12)
  - Cardiac flutter [Not Recovered/Not Resolved]
  - Metrorrhagia [None]
  - Tonsillitis [None]
  - Heart rate irregular [Not Recovered/Not Resolved]
  - Pain in extremity [None]
  - Dizziness [None]
  - Malaise [None]
  - Chest discomfort [None]
  - Muscle spasms [None]
  - Palpitations [None]
  - Product use issue [None]
  - Anaemia [None]

NARRATIVE: CASE EVENT DATE: 201604
